FAERS Safety Report 16798274 (Version 1)
Quarter: 2019Q4

REPORT INFORMATION
  Report Type: Spontaneous
  Country: US (occurrence: US)
  Receive Date: 20190911
  Receipt Date: 20190911
  Transmission Date: 20200122
  Serious: Yes (Disabling)
  Sender: FDA-Public Use
  Company Number: None

PATIENT
  Age: 62 Year
  Sex: Female
  Weight: 72 kg

DRUGS (12)
  1. CALCIUM [Concomitant]
     Active Substance: CALCIUM
  2. OMEGA [Concomitant]
     Active Substance: CONVALLARIA MAJALIS\CRATAEGUS LAEVIGATA LEAF\PROXYPHYLLINE
  3. SKIN [Concomitant]
  4. NAILS VITAMINS [Concomitant]
  5. BIOTIN [Concomitant]
     Active Substance: BIOTIN
  6. DAILY ASPRIN [Concomitant]
  7. CLOPIDOGREL [Suspect]
     Active Substance: CLOPIDOGREL BISULFATE
     Indication: ANTICOAGULANT THERAPY
     Dosage: ?          QUANTITY:1 TABLET(S);?
     Route: 048
     Dates: start: 20190711, end: 20190808
  8. COQ10 [Concomitant]
     Active Substance: UBIDECARENONE
  9. CARVEDILOL. [Concomitant]
     Active Substance: CARVEDILOL
  10. DAILY VITAMIN [Concomitant]
     Active Substance: VITAMINS
  11. HAIR [Concomitant]
     Active Substance: PYRITHIONE ZINC
  12. LIPITOR [Concomitant]
     Active Substance: ATORVASTATIN CALCIUM

REACTIONS (1)
  - Lupus-like syndrome [None]

NARRATIVE: CASE EVENT DATE: 20190807
